FAERS Safety Report 22952104 (Version 6)
Quarter: 2024Q4

REPORT INFORMATION
  Report Type: Spontaneous
  Country: CA (occurrence: CA)
  Receive Date: 20230918
  Receipt Date: 20241211
  Transmission Date: 20250114
  Serious: Yes (Other)
  Sender: CELLTRION
  Company Number: CA-CELLTRION INC.-2023CA018120

PATIENT

DRUGS (21)
  1. INFLECTRA [Suspect]
     Active Substance: INFLIXIMAB-DYYB
     Indication: Colitis ulcerative
     Dosage: 10 MG/KG, ROUND TO NEAREST HUNDRED, W0, W2, W6 THEN Q 8 WEEKS - HOSPITAL START
     Route: 042
     Dates: start: 20230530
  2. INFLECTRA [Suspect]
     Active Substance: INFLIXIMAB-DYYB
     Dosage: 10 MG/KG, ROUND TO NEAREST HUNDRED, W0, W2, W6 THEN Q 8 WEEKS - HOSPITAL START
     Route: 042
     Dates: start: 20230717
  3. INFLECTRA [Suspect]
     Active Substance: INFLIXIMAB-DYYB
     Dosage: 10 MG/KG, ROUND TO NEAREST HUNDRED, W0, W2, W6 THEN Q8WEEKS - HOSPITAL START (900 MG, AFTER 8 WEEKS)
     Route: 042
     Dates: start: 20230911
  4. INFLECTRA [Suspect]
     Active Substance: INFLIXIMAB-DYYB
     Dosage: 800 MG, 8 WEEKS (10 MG/KG, ROUND TO NEAREST HUNDRED, W0, W2, W6 THEN Q 8 WEEKS - HOSPITAL START)
     Route: 042
     Dates: start: 20231106
  5. INFLECTRA [Suspect]
     Active Substance: INFLIXIMAB-DYYB
     Dosage: 800 MG, 8 WEEKS (10 MG/KG, ROUND TO NEAREST HUNDRED, W0, W2, W6 THEN Q 8 WEEKS - HOSPITAL START)
     Route: 042
     Dates: start: 20240103
  6. INFLECTRA [Suspect]
     Active Substance: INFLIXIMAB-DYYB
     Dosage: 800 MG, 8 WEEKS (10 MG/KG, W0, W2, W6 THEN Q 8 WEEKS), (AFTER 7 WEEKS + 5 DAYS)
     Route: 042
     Dates: start: 20240226
  7. INFLECTRA [Suspect]
     Active Substance: INFLIXIMAB-DYYB
     Dosage: 10 MG/KG, ROUND TO NEAREST HUNDRED, W0, W2, W6 THEN Q 8 WEEKS
     Route: 042
     Dates: start: 20240422
  8. INFLECTRA [Suspect]
     Active Substance: INFLIXIMAB-DYYB
     Dosage: 10 MG/KG, ROUND TO NEAREST HUNDRED, W0, W2, W6 THEN Q 8 WEEKS
     Route: 042
     Dates: start: 20240422
  9. INFLECTRA [Suspect]
     Active Substance: INFLIXIMAB-DYYB
     Dosage: 10 MG/KG, ROUND TO NEAREST HUNDRED, W0, W2, W6 THEN Q 8 WEEKS
     Route: 042
     Dates: start: 20240422
  10. INFLECTRA [Suspect]
     Active Substance: INFLIXIMAB-DYYB
     Dosage: 10 MG/KG, ROUND TO NEAREST HUNDRED, W0, W2, W6 THEN Q 8 WEEKS (800 MG, 8 WEEKS)
     Route: 042
     Dates: start: 20240617
  11. INFLECTRA [Suspect]
     Active Substance: INFLIXIMAB-DYYB
     Dosage: 10 MG/KG, ROUND TO NEAREST HUNDRED, W0, W2, W6 THEN Q 8 WEEKS (800 MG, 8 WEEKS)
     Route: 042
     Dates: start: 20241007
  12. INFLECTRA [Suspect]
     Active Substance: INFLIXIMAB-DYYB
     Dosage: 800 MG, 8 WEEKS, (10 MG/KG, ROUND TO NEAREST HUNDRED, W0, W2, W6 THEN Q 8 WEEKS - HOSPITAL START)
     Route: 042
     Dates: start: 20241202
  13. AMLODIPINE [Concomitant]
     Active Substance: AMLODIPINE BESYLATE
     Dosage: UNK
  14. CAL D 400 [Concomitant]
     Dosage: UNK
  15. IRON [Concomitant]
     Active Substance: IRON
     Dosage: UNK
     Dates: end: 2023
  16. METFORMIN [Concomitant]
     Active Substance: METFORMIN HYDROCHLORIDE
     Dosage: UNK
  17. PERINDOPRIL [Concomitant]
     Active Substance: PERINDOPRIL
     Dosage: UNK
  18. ROSUVASTATIN [Concomitant]
     Active Substance: ROSUVASTATIN
     Dosage: UNK
  19. FERROUS SULFATE [Concomitant]
     Active Substance: FERROUS SULFATE
     Dosage: UNK
  20. FERROUS SULFATE [Concomitant]
     Active Substance: FERROUS SULFATE
     Dosage: 1 DF, UNKNOWN
     Dates: start: 2023
  21. SYNTHROID [Concomitant]
     Active Substance: LEVOTHYROXINE SODIUM
     Dosage: UNK

REACTIONS (13)
  - Diabetes mellitus [Recovering/Resolving]
  - Taste disorder [Recovering/Resolving]
  - Dry mouth [Not Recovered/Not Resolved]
  - Blood pressure abnormal [Not Recovered/Not Resolved]
  - Alopecia [Recovering/Resolving]
  - Weight decreased [Unknown]
  - Dysgeusia [Recovering/Resolving]
  - Arthritis [Not Recovered/Not Resolved]
  - Paraesthesia [Not Recovered/Not Resolved]
  - Headache [Not Recovered/Not Resolved]
  - Off label use [Unknown]
  - Off label use [Unknown]
  - Intentional product use issue [Unknown]

NARRATIVE: CASE EVENT DATE: 20230101
